FAERS Safety Report 22383673 (Version 1)
Quarter: 2023Q2

REPORT INFORMATION
  Report Type: Report from Study
  Country: JP (occurrence: JP)
  Receive Date: 20230530
  Receipt Date: 20230530
  Transmission Date: 20230722
  Serious: Yes (Other)
  Sender: FDA-Public Use
  Company Number: JP-TAKEDA-2022TJP074021

PATIENT
  Age: 60 Year
  Sex: Male
  Weight: 87 kg

DRUGS (10)
  1. CABOMETYX [Suspect]
     Active Substance: CABOZANTINIB S-MALATE
     Indication: Renal cell carcinoma stage IV
     Dosage: 40 MG, QD
     Route: 048
     Dates: start: 20220225, end: 20220408
  2. CABOMETYX [Suspect]
     Active Substance: CABOZANTINIB S-MALATE
     Dosage: 20 MG, QD
     Route: 048
     Dates: start: 20220409, end: 20220506
  3. OLMESARTAN [Concomitant]
     Active Substance: OLMESARTAN
     Indication: Renal cell carcinoma stage IV
     Dosage: UNK
     Route: 065
     Dates: start: 20180413
  4. AMLODIPINE BESYLATE [Concomitant]
     Active Substance: AMLODIPINE BESYLATE
     Indication: Renal cell carcinoma stage IV
     Dosage: UNK
     Route: 065
     Dates: start: 20180413
  5. ENALAPRIL MALEATE [Concomitant]
     Active Substance: ENALAPRIL MALEATE
     Indication: Renal cell carcinoma stage IV
     Dosage: UNK
     Route: 065
     Dates: start: 20191115
  6. BISOPROLOL FUMARATE [Concomitant]
     Active Substance: BISOPROLOL FUMARATE
     Indication: Renal cell carcinoma stage IV
     Dosage: UNK
     Route: 065
     Dates: start: 20210326
  7. RILMAZAFONE HYDROCHLORIDE [Concomitant]
     Active Substance: RILMAZAFONE HYDROCHLORIDE
     Indication: Renal cell carcinoma stage IV
     Dosage: UNK
     Route: 065
     Dates: start: 20180304
  8. PREDONINE [Concomitant]
     Active Substance: PREDNISOLONE
     Indication: Renal cell carcinoma stage IV
     Dosage: UNK
     Route: 065
     Dates: start: 20220204
  9. NEXIUM [Concomitant]
     Active Substance: ESOMEPRAZOLE MAGNESIUM
     Indication: Renal cell carcinoma stage IV
     Dosage: UNK
     Route: 065
     Dates: start: 20220204
  10. SULFAMETHOXAZOLE\TRIMETHOPRIM [Concomitant]
     Active Substance: SULFAMETHOXAZOLE\TRIMETHOPRIM
     Indication: Renal cell carcinoma stage IV
     Dosage: UNK
     Route: 065
     Dates: start: 20220204

REACTIONS (3)
  - Pulmonary toxicity [Recovered/Resolved]
  - Palmar-plantar erythrodysaesthesia syndrome [Recovered/Resolved]
  - Diarrhoea [Recovered/Resolved]

NARRATIVE: CASE EVENT DATE: 20220408
